FAERS Safety Report 5058501-1 (Version None)
Quarter: 2006Q3

REPORT INFORMATION
  Report Type: 
  Country: None (occurrence: None)
  Receive Date: 20060721
  Receipt Date: 20060713
  Transmission Date: 20061208
  Serious: Yes (Death, Congenital Anomaly)
  Sender: FDA-Public Use
  Company Number: FR-ABBOTT-06P-056-0338131-00

PATIENT

DRUGS (1)
  1. DEPAKENE [Suspect]
     Indication: DRUG EXPOSURE DURING PREGNANCY

REACTIONS (9)
  - ARNOLD-CHIARI MALFORMATION [None]
  - BRAIN HERNIATION [None]
  - CONGENITAL HAND MALFORMATION [None]
  - MENINGOMYELOCELE [None]
  - MICROCEPHALY [None]
  - PULMONARY MALFORMATION [None]
  - SKULL MALFORMATION [None]
  - SPINA BIFIDA [None]
  - TALIPES [None]
